FAERS Safety Report 5922728-4 (Version None)
Quarter: 2008Q4

REPORT INFORMATION
  Report Type: 
  Country: None (occurrence: None)
  Receive Date: 20081017
  Receipt Date: 20081009
  Transmission Date: 20090506
  Serious: Yes (Death)
  Sender: FDA-Public Use
  Company Number: CZ-ELI_LILLY_AND_COMPANY-CZ200810002484

PATIENT
  Age: 29 Year
  Sex: Male

DRUGS (5)
  1. ZYPREXA [Suspect]
     Indication: SCHIZOAFFECTIVE DISORDER
     Dosage: 25 MG, DAILY (1/D)
     Route: 048
     Dates: start: 20070101
  2. NOVERIL [Concomitant]
     Indication: SCHIZOAFFECTIVE DISORDER
     Route: 048
  3. RIVOTRIL [Concomitant]
     Indication: SCHIZOAFFECTIVE DISORDER
     Route: 048
  4. LAMICTAL [Concomitant]
     Indication: SCHIZOAFFECTIVE DISORDER
     Route: 048
  5. ETHANOL [Concomitant]

REACTIONS (2)
  - COMPLETED SUICIDE [None]
  - OVERDOSE [None]
